FAERS Safety Report 24283234 (Version 1)
Quarter: 2024Q3

REPORT INFORMATION
  Report Type: Spontaneous
  Country: US (occurrence: US)
  Receive Date: 20240904
  Receipt Date: 20240904
  Transmission Date: 20241017
  Serious: Yes (Other)
  Sender: PFIZER
  Company Number: US-PFIZER INC-PV202400115620

PATIENT
  Age: 79 Year
  Sex: Male

DRUGS (1)
  1. VYNDAMAX [Suspect]
     Active Substance: TAFAMIDIS
     Indication: Cardiac amyloidosis
     Dosage: UNK

REACTIONS (8)
  - Neuropathy peripheral [Unknown]
  - Cardiac failure [Unknown]
  - Condition aggravated [Unknown]
  - Spinal stenosis [Not Recovered/Not Resolved]
  - Abdominal distension [Unknown]
  - Tremor [Unknown]
  - Constipation [Unknown]
  - Sleep apnoea syndrome [Unknown]
